FAERS Safety Report 12085869 (Version 8)
Quarter: 2016Q2

REPORT INFORMATION
  Report Type: Spontaneous
  Country: US (occurrence: US)
  Receive Date: 20160217
  Receipt Date: 20160630
  Transmission Date: 20160815
  Serious: No
  Sender: FDA-Public Use
  Company Number: US-ALEXION-A201600999

PATIENT
  Sex: Male

DRUGS (6)
  1. STRENSIQ [Suspect]
     Active Substance: ASFOTASE ALFA
     Indication: HYPOPHOSPHATASIA
     Dosage: UNK, SIX TIMES/WEEK
     Route: 058
     Dates: start: 20151209
  2. XARELTO [Concomitant]
     Active Substance: RIVAROXABAN
     Indication: PRODUCT USED FOR UNKNOWN INDICATION
     Dosage: UNK
     Route: 065
  3. CARAFATE [Concomitant]
     Active Substance: SUCRALFATE
     Indication: PRODUCT USED FOR UNKNOWN INDICATION
     Dosage: 1 G, 4X DAILY
     Route: 065
  4. COSYNTROPIN. [Concomitant]
     Active Substance: COSYNTROPIN
     Indication: PRODUCT USED FOR UNKNOWN INDICATION
     Dosage: UNK
     Route: 042
  5. METOPROLOL. [Concomitant]
     Active Substance: METOPROLOL
     Indication: PRODUCT USED FOR UNKNOWN INDICATION
     Dosage: UNK
     Route: 065
  6. NEXIUM [Concomitant]
     Active Substance: ESOMEPRAZOLE MAGNESIUM
     Indication: PRODUCT USED FOR UNKNOWN INDICATION
     Dosage: 40 MG, QD
     Route: 065

REACTIONS (19)
  - Abnormal faeces [Unknown]
  - Diarrhoea [Unknown]
  - Dyspnoea [Unknown]
  - Vision blurred [Unknown]
  - Nausea [Unknown]
  - Presyncope [Unknown]
  - Blood alkaline phosphatase increased [Unknown]
  - Vitamin B6 decreased [Unknown]
  - Vitamin D decreased [Unknown]
  - Blood electrolytes decreased [Unknown]
  - Gait disturbance [Unknown]
  - Pain in extremity [Unknown]
  - Fatigue [Recovered/Resolved]
  - Oxygen saturation decreased [Unknown]
  - Weight decreased [Unknown]
  - Constipation [Unknown]
  - Gastritis [Unknown]
  - Dizziness [Unknown]
  - Nausea [Recovered/Resolved]
